FAERS Safety Report 4763181-6 (Version None)
Quarter: 2005Q3

REPORT INFORMATION
  Report Type: 
  Country: None (occurrence: None)
  Receive Date: 20050902
  Receipt Date: 20050823
  Transmission Date: 20060218
  Serious: Yes (Other)
  Sender: FDA-Public Use
  Company Number: TCI2005A03141

PATIENT
  Age: 71 Year
  Sex: Male

DRUGS (9)
  1. ACTOS [Suspect]
     Indication: DIABETES MELLITUS NON-INSULIN-DEPENDENT
     Dosage: SEE IMAGE
     Route: 048
     Dates: start: 20050205, end: 20050603
  2. ACTOS [Suspect]
     Indication: DIABETES MELLITUS NON-INSULIN-DEPENDENT
     Dosage: SEE IMAGE
     Route: 048
     Dates: start: 20050604, end: 20050628
  3. ACTOS [Suspect]
     Indication: DIABETES MELLITUS NON-INSULIN-DEPENDENT
     Dosage: SEE IMAGE
     Route: 048
     Dates: start: 20050629, end: 20050808
  4. BASEN TABLETS [Concomitant]
  5. AMARYL [Concomitant]
  6. DILTIAZEM HYDROCHLORIDE [Concomitant]
  7. LOSARTAN POTASSIUM [Concomitant]
  8. NITROL R (GLYCERYL TRINITRATE) [Concomitant]
  9. BAYASPRIN (ACETYLSALICYLIC ACID) [Concomitant]

REACTIONS (3)
  - DYSPNOEA EXERTIONAL [None]
  - PLEURAL EFFUSION [None]
  - WEIGHT INCREASED [None]
